FAERS Safety Report 8934540 (Version 1)
Quarter: 2012Q4

REPORT INFORMATION
  Report Type: 
  Country: US (occurrence: US)
  Receive Date: 20121129
  Receipt Date: 20121129
  Transmission Date: 20130627
  Serious: No
  Sender: FDA-Public Use
  Company Number: US-GLAXOSMITHKLINE-A0990778B

PATIENT

DRUGS (3)
  1. FLOVENT [Suspect]
     Indication: ASTHMA
     Dosage: 1PUFF Twice per day
     Route: 064
     Dates: start: 20110514, end: 201105
  2. FLOVENT [Suspect]
     Indication: ASTHMA
     Route: 064
     Dates: end: 20120514
  3. VITAMINS [Concomitant]
     Route: 065

REACTIONS (2)
  - Foetal exposure during pregnancy [Unknown]
  - Exposure during breast feeding [Unknown]
